FAERS Safety Report 8840102 (Version 1)
Quarter: 2012Q4

REPORT INFORMATION
  Report Type: Spontaneous
  Country: US (occurrence: None)
  Receive Date: 20121010
  Receipt Date: 20121010
  Transmission Date: 20130627
  Serious: Yes (Hospitalization, Other)
  Sender: FDA-Public Use
  Company Number: JPI-P-024007

PATIENT
  Age: 41 Year
  Sex: Male

DRUGS (5)
  1. XYREM [Suspect]
     Indication: DYSFUNCTIONS ASSOCIATED WITH SLEEP STAGES OR AROUSAL FROM SLEEP
     Route: 048
     Dates: start: 20041028
  2. XYREM [Suspect]
     Indication: DYSFUNCTIONS ASSOCIATED WITH SLEEP STAGES OR AROUSAL FROM SLEEP
     Dates: start: 20041028
  3. XYREM [Suspect]
     Indication: DYSFUNCTIONS ASSOCIATED WITH SLEEP STAGES OR AROUSAL FROM SLEEP
     Dosage: Unspecified titrating dose
     Route: 048
  4. XYREM [Suspect]
     Indication: DYSFUNCTIONS ASSOCIATED WITH SLEEP STAGES OR AROUSAL FROM SLEEP
     Route: 048
     Dates: start: 20050531
  5. XYREM [Suspect]
     Indication: DYSFUNCTIONS ASSOCIATED WITH SLEEP STAGES OR AROUSAL FROM SLEEP
     Dates: start: 20050531

REACTIONS (5)
  - Somnambulism [None]
  - Fall [None]
  - Upper limb fracture [None]
  - Insomnia [None]
  - Blood pressure increased [None]
